FAERS Safety Report 12237495 (Version 3)
Quarter: 2016Q4

REPORT INFORMATION
  Report Type: Spontaneous
  Country: US (occurrence: US)
  Receive Date: 20160405
  Receipt Date: 20161006
  Transmission Date: 20170207
  Serious: Yes (Other)
  Sender: FDA-Public Use
  Company Number: US-009507513-1604USA001024

PATIENT
  Sex: Male

DRUGS (1)
  1. PROPECIA [Suspect]
     Active Substance: FINASTERIDE
     Indication: ALOPECIA
     Dosage: 1 MG, QD
     Route: 048
     Dates: start: 2003, end: 2003

REACTIONS (20)
  - Ejaculation disorder [Not Recovered/Not Resolved]
  - Penile size reduced [Not Recovered/Not Resolved]
  - Loss of libido [Recovered/Resolved]
  - Anxiety [Not Recovered/Not Resolved]
  - Joint dislocation [Unknown]
  - Depression [Not Recovered/Not Resolved]
  - Male sexual dysfunction [Not Recovered/Not Resolved]
  - Erectile dysfunction [Not Recovered/Not Resolved]
  - Stress [Unknown]
  - Hormone level abnormal [Not Recovered/Not Resolved]
  - Testicular cyst [Unknown]
  - Emotional distress [Not Recovered/Not Resolved]
  - Penis injury [Not Recovered/Not Resolved]
  - Testicular atrophy [Not Recovered/Not Resolved]
  - Venoocclusive disease [Unknown]
  - Painful ejaculation [Not Recovered/Not Resolved]
  - Lower urinary tract symptoms [Unknown]
  - Arterial insufficiency [Unknown]
  - Brain injury [Not Recovered/Not Resolved]
  - Male genital atrophy [Unknown]

NARRATIVE: CASE EVENT DATE: 2004
